FAERS Safety Report 21979857 (Version 2)
Quarter: 2023Q2

REPORT INFORMATION
  Report Type: Spontaneous
  Country: EG (occurrence: EG)
  Receive Date: 20230210
  Receipt Date: 20230607
  Transmission Date: 20230722
  Serious: Yes (Hospitalization, Other)
  Sender: FDA-Public Use
  Company Number: EG-ELI_LILLY_AND_COMPANY-EG202301004726

PATIENT
  Age: 48 Year
  Sex: Male
  Weight: 89 kg

DRUGS (6)
  1. HUMULIN 70/30 [Suspect]
     Active Substance: INSULIN HUMAN
     Indication: Diabetes mellitus
     Dosage: 35 INTERNATIONAL UNIT, EACH MORNING (BEFORE BREAKFAST)
     Route: 058
     Dates: start: 20221029
  2. HUMULIN 70/30 [Suspect]
     Active Substance: INSULIN HUMAN
     Dosage: 20 INTERNATIONAL UNIT, EACH EVENING (BEFORE DINNER)
     Route: 058
     Dates: start: 20221029
  3. BISOPROLOL FUMARATE [Concomitant]
     Active Substance: BISOPROLOL FUMARATE
     Indication: Product used for unknown indication
     Dosage: UNK, DAILY
  4. CHOLEROSE [Concomitant]
     Indication: Product used for unknown indication
     Dosage: 20 MG, DAILY
  5. PLAVIX [Concomitant]
     Active Substance: CLOPIDOGREL BISULFATE
     Indication: Product used for unknown indication
     Dosage: UNK, DAILY
  6. ASPIRIN [Concomitant]
     Active Substance: ASPIRIN
     Indication: Product used for unknown indication

REACTIONS (3)
  - Arterial occlusive disease [Not Recovered/Not Resolved]
  - Angina pectoris [Unknown]
  - Hypercholesterolaemia [Unknown]

NARRATIVE: CASE EVENT DATE: 20221201
